FAERS Safety Report 14197341 (Version 5)
Quarter: 2018Q3

REPORT INFORMATION
  Report Type: Spontaneous
  Country: US (occurrence: US)
  Receive Date: 20171116
  Receipt Date: 20180914
  Transmission Date: 20181010
  Serious: Yes (Other)
  Sender: FDA-Public Use
  Company Number: US-009507513-1711USA003917

PATIENT
  Age: 22 Year
  Sex: Female
  Weight: 83.9 kg

DRUGS (2)
  1. IMPLANON [Suspect]
     Active Substance: ETONOGESTREL
     Indication: CONTRACEPTION
     Dosage: ONE IMPLANT, EVERY 3 YEARS, LEFT ARM
     Route: 059
     Dates: start: 20100113
  2. EFFEXOR [Concomitant]
     Active Substance: VENLAFAXINE HYDROCHLORIDE
     Dosage: ONE (150 MG) CAPSULE, ONCE A DAY
     Route: 048

REACTIONS (16)
  - Pain in extremity [Unknown]
  - Implant site scar [Unknown]
  - Limb discomfort [Unknown]
  - Incorrect drug administration duration [Unknown]
  - Implant site pain [Not Recovered/Not Resolved]
  - Pregnancy with implant contraceptive [Not Recovered/Not Resolved]
  - Device difficult to use [Not Recovered/Not Resolved]
  - Movement disorder [Unknown]
  - Unintended pregnancy [Not Recovered/Not Resolved]
  - Complication of device removal [Not Recovered/Not Resolved]
  - Peripheral swelling [Unknown]
  - Device dislocation [Not Recovered/Not Resolved]
  - Medication error [Unknown]
  - Menorrhagia [Unknown]
  - Myalgia [Unknown]
  - Complication associated with device [Not Recovered/Not Resolved]

NARRATIVE: CASE EVENT DATE: 20100113
